FAERS Safety Report 22212283 (Version 4)
Quarter: 2024Q2

REPORT INFORMATION
  Report Type: Report from Study
  Country: US (occurrence: US)
  Receive Date: 20230414
  Receipt Date: 20240404
  Transmission Date: 20240716
  Serious: No
  Sender: FDA-Public Use
  Company Number: US-002147023-NVSC2023US085886

PATIENT
  Sex: Female

DRUGS (1)
  1. ENTRESTO [Suspect]
     Active Substance: SACUBITRIL\VALSARTAN
     Indication: Product used for unknown indication
     Dosage: 1 DOSAGE FORM, BID
     Route: 065

REACTIONS (8)
  - Neck injury [Unknown]
  - Nervous system disorder [Unknown]
  - Blood pressure increased [Unknown]
  - Sinus disorder [Unknown]
  - Throat clearing [Unknown]
  - Cough [Unknown]
  - Hypertension [Unknown]
  - Malaise [Unknown]
